FAERS Safety Report 5494911-6 (Version None)
Quarter: 2007Q4

REPORT INFORMATION
  Report Type: 
  Country: None (occurrence: None)
  Receive Date: 20071024
  Receipt Date: 20071017
  Transmission Date: 20080405
  Serious: Yes (Hospitalization, Disabling)
  Sender: FDA-Public Use
  Company Number: US-JNJFOC-20070302356

PATIENT
  Sex: Female
  Weight: 68.04 kg

DRUGS (14)
  1. ORTHO EVRA [Suspect]
     Indication: CONTRACEPTION
     Route: 062
  2. ORTHO EVRA [Suspect]
     Indication: MENSTRUATION IRREGULAR
     Route: 062
  3. CATAPRES [Concomitant]
  4. LANOXIN [Concomitant]
  5. PROCARDIA [Concomitant]
  6. FUROSEMIDE [Concomitant]
  7. ZYRTEC [Concomitant]
  8. TYLENOL (CAPLET) [Concomitant]
  9. NASONEX [Concomitant]
  10. SYNTHROID [Concomitant]
  11. DITROPAN [Concomitant]
  12. MULTI-VITAMIN [Concomitant]
  13. ASCORBIC ACID [Concomitant]
  14. PROZAC [Concomitant]

REACTIONS (4)
  - CEREBROVASCULAR ACCIDENT [None]
  - CONVULSION [None]
  - INAPPROPRIATE SCHEDULE OF DRUG ADMINISTRATION [None]
  - OFF LABEL USE [None]
